FAERS Safety Report 11096030 (Version 1)
Quarter: 2015Q2

REPORT INFORMATION
  Report Type: Spontaneous
  Country: GB (occurrence: None)
  Receive Date: 20150505
  Receipt Date: 20150505
  Transmission Date: 20150821
  Serious: Yes (Hospitalization)
  Sender: FDA-Public Use
  Company Number: GB-H14001-15-00641

PATIENT
  Age: 76 Year
  Sex: Female

DRUGS (12)
  1. CO-AMOXICLAV (AUGMENTIN /00756801/) (UNKNOWN) (AMOXICILLIN SODIUM, CLAVULANATE POTASSIUM) [Suspect]
     Active Substance: AMOXICILLIN\CLAVULANATE POTASSIUM
     Indication: DIVERTICULITIS
     Dosage: 1875 MG (625 MG, 3 IN 1 D)
     Dates: start: 20150410, end: 20150415
  2. AMITRIPTYLINE [Concomitant]
     Active Substance: AMITRIPTYLINE
  3. FUROSEMIDE. [Concomitant]
     Active Substance: FUROSEMIDE
  4. PERINDOPRIL ERBUMINE. [Concomitant]
     Active Substance: PERINDOPRIL ERBUMINE
  5. LANSOPRAZOLE. [Concomitant]
     Active Substance: LANSOPRAZOLE
  6. PEPPERMINT OIL (MENTHA X PIPERITA OIL) [Concomitant]
  7. SALBUTAMOL [Concomitant]
     Active Substance: ALBUTEROL
  8. HYOSCINE BUTYLBROMIDE [Concomitant]
     Active Substance: BUTYLSCOPOLAMINE
  9. SERTRALINE [Concomitant]
     Active Substance: SERTRALINE HYDROCHLORIDE
  10. CO-CODAMOL (PANADEINE CO) (UNKNOWN) (CODEINE PHOSPHATE, PARACETAMOL) [Concomitant]
  11. LEVOTHYROXINE SODIUM. [Concomitant]
     Active Substance: LEVOTHYROXINE SODIUM
  12. SERETIDE (SERETIDE) (UNKNOWN) (FLUTICASONE PROPIONATE, SALMETEROL XINAFOATE) [Concomitant]

REACTIONS (2)
  - Abdominal pain [None]
  - Diarrhoea [None]

NARRATIVE: CASE EVENT DATE: 201504
